FAERS Safety Report 15113881 (Version 1)
Quarter: 2018Q2

REPORT INFORMATION
  Report Type: Spontaneous
  Country: US (occurrence: US)
  Receive Date: 20180612
  Receipt Date: 20180612
  Transmission Date: 20180711
  Serious: No
  Sender: FDA-Public Use
  Company Number: None

PATIENT
  Age: 58 Year
  Sex: Female

DRUGS (1)
  1. TASIGNA [Suspect]
     Active Substance: NILOTINIB
     Route: 048
     Dates: start: 20170608, end: 20180612

REACTIONS (3)
  - Transcription medication error [None]
  - Drug dispensing error [None]
  - Drug dose omission [None]

NARRATIVE: CASE EVENT DATE: 20180508
